FAERS Safety Report 5995108-3 (Version None)
Quarter: 2008Q4

REPORT INFORMATION
  Report Type: 
  Country: None (occurrence: None)
  Receive Date: 20081212
  Receipt Date: 20081204
  Transmission Date: 20090506
  Serious: Yes (Other)
  Sender: FDA-Public Use
  Company Number: US-PFIZER INC-2008151224

PATIENT
  Sex: Male
  Weight: 118.37 kg

DRUGS (5)
  1. CELEBREX [Suspect]
     Indication: BACK PAIN
     Dosage: 200 MG, 2X/DAY
  2. ALL OTHER THERAPEUTIC PRODUCTS [Concomitant]
     Dosage: UNK
  3. ACETYLSALICYLIC ACID [Concomitant]
     Dosage: UNK
  4. HYDROCODONE [Concomitant]
     Dosage: UNK
  5. CHOLESTEROL- AND TRIGLYCERIDE REDUCERS [Concomitant]
     Dosage: UNK

REACTIONS (9)
  - ANEURYSM [None]
  - BACK INJURY [None]
  - BALANCE DISORDER [None]
  - CEREBROVASCULAR ACCIDENT [None]
  - EXCORIATION [None]
  - FALL [None]
  - HIP ARTHROPLASTY [None]
  - PARKINSON'S DISEASE [None]
  - RIB FRACTURE [None]
